FAERS Safety Report 5503593-6 (Version None)
Quarter: 2007Q4

REPORT INFORMATION
  Report Type: 
  Country: None (occurrence: None)
  Receive Date: 20071029
  Receipt Date: 20071015
  Transmission Date: 20080405
  Serious: Yes (Life-Threatening)
  Sender: FDA-Public Use
  Company Number: 2007P1000680

PATIENT
  Age: 15 Year
  Sex: Male

DRUGS (5)
  1. BUSULFAN (BUSULFAN) [Suspect]
     Indication: STEM CELL TRANSPLANT
     Dosage: 27.48 ML;QD;IV
     Route: 042
     Dates: start: 20070212, end: 20070213
  2. FLUDARABINE PHOSPHATE [Concomitant]
  3. PHENYTOIN [Concomitant]
  4. NEUPOGEN [Concomitant]
  5. TACROLIMUS [Concomitant]

REACTIONS (10)
  - ANOREXIA [None]
  - CYSTITIS [None]
  - CYSTITIS HAEMORRHAGIC [None]
  - DIARRHOEA [None]
  - GRAFT VERSUS HOST DISEASE [None]
  - NAUSEA [None]
  - PNEUMONIA [None]
  - SEPSIS [None]
  - STOMATITIS HAEMORRHAGIC [None]
  - VOMITING [None]
